FAERS Safety Report 20179195 (Version 3)
Quarter: 2021Q4

REPORT INFORMATION
  Report Type: Spontaneous
  Country: US (occurrence: US)
  Receive Date: 20211214
  Receipt Date: 20211220
  Transmission Date: 20220304
  Serious: Yes (Hospitalization, Other)
  Sender: FDA-Public Use
  Company Number: US-ABBVIE-21K-163-4197470-00

PATIENT
  Sex: Male
  Weight: 21.792 kg

DRUGS (1)
  1. HUMIRA [Suspect]
     Active Substance: ADALIMUMAB
     Indication: Colitis ulcerative
     Route: 058
     Dates: start: 202110

REACTIONS (5)
  - Haemorrhage [Unknown]
  - Large intestinal haemorrhage [Not Recovered/Not Resolved]
  - Blood iron decreased [Unknown]
  - Colitis ulcerative [Not Recovered/Not Resolved]
  - Device issue [Unknown]

NARRATIVE: CASE EVENT DATE: 20210101
